FAERS Safety Report 20795424 (Version 31)
Quarter: 2024Q1

REPORT INFORMATION
  Report Type: Spontaneous
  Country: IL (occurrence: IL)
  Receive Date: 20220506
  Receipt Date: 20240212
  Transmission Date: 20240410
  Serious: Yes (Other)
  Sender: FDA-Public Use
  Company Number: IL-PFIZER INC-2018171563

PATIENT
  Age: 42 Year
  Sex: Male

DRUGS (24)
  1. ELELYSO [Suspect]
     Active Substance: TALIGLUCERASE ALFA
     Indication: Gaucher^s disease
     Dosage: 1400 IU, TWICE A MONTH
     Route: 042
     Dates: start: 20160301
  2. ELELYSO [Suspect]
     Active Substance: TALIGLUCERASE ALFA
     Dosage: 1400 IU, TWICE A MONTH
     Route: 042
  3. ELELYSO [Suspect]
     Active Substance: TALIGLUCERASE ALFA
     Dosage: 1400 IU, TWICE A MONTH
  4. ELELYSO [Suspect]
     Active Substance: TALIGLUCERASE ALFA
     Dosage: UNK
     Dates: start: 20190318
  5. ELELYSO [Suspect]
     Active Substance: TALIGLUCERASE ALFA
     Dosage: 1400 IU, TWICE A MONTH
     Route: 042
  6. ELELYSO [Suspect]
     Active Substance: TALIGLUCERASE ALFA
     Dosage: UNK
     Route: 042
  7. ELELYSO [Suspect]
     Active Substance: TALIGLUCERASE ALFA
     Dosage: UNK
     Route: 042
  8. ELELYSO [Suspect]
     Active Substance: TALIGLUCERASE ALFA
     Dosage: 1400 IU, TWICE A MONTH
     Route: 042
  9. ELELYSO [Suspect]
     Active Substance: TALIGLUCERASE ALFA
     Dosage: 1400 IU, TWICE A MONTH
     Route: 042
  10. ELELYSO [Suspect]
     Active Substance: TALIGLUCERASE ALFA
     Dosage: 1400 IU, TWICE A MONTH
     Route: 042
  11. ELELYSO [Suspect]
     Active Substance: TALIGLUCERASE ALFA
     Dosage: 1400 IU, TWICE A MONTH
     Route: 042
  12. ELELYSO [Suspect]
     Active Substance: TALIGLUCERASE ALFA
     Dosage: 1400 IU, TWICE A MONTH
     Route: 042
  13. ELELYSO [Suspect]
     Active Substance: TALIGLUCERASE ALFA
     Dosage: 1400 IU, TWICE A MONTH
     Route: 042
  14. ELELYSO [Suspect]
     Active Substance: TALIGLUCERASE ALFA
     Dosage: 1400 IU, TWICE A MONTH
     Route: 042
     Dates: start: 20230315
  15. ELELYSO [Suspect]
     Active Substance: TALIGLUCERASE ALFA
     Dosage: 1400 IU, TWICE A MONTH
  16. ELELYSO [Suspect]
     Active Substance: TALIGLUCERASE ALFA
     Dosage: 1400 IU, TWICE A MONTH
     Route: 042
  17. ELELYSO [Suspect]
     Active Substance: TALIGLUCERASE ALFA
     Dosage: 1400 IU, TWICE A MONTH
     Route: 042
     Dates: start: 20230531, end: 20230629
  18. ELELYSO [Suspect]
     Active Substance: TALIGLUCERASE ALFA
     Dosage: 1400 IU
     Route: 042
     Dates: start: 20230713, end: 20230713
  19. ELELYSO [Suspect]
     Active Substance: TALIGLUCERASE ALFA
     Dosage: 1400 IU, TWICE A MONTH
     Route: 042
  20. ELELYSO [Suspect]
     Active Substance: TALIGLUCERASE ALFA
     Dosage: 1400 IU, TWICE A MONTH
     Route: 042
     Dates: start: 20231101
  21. ELELYSO [Suspect]
     Active Substance: TALIGLUCERASE ALFA
     Dosage: 1400 IU, TWICE A MONTH
     Route: 042
     Dates: start: 20231115, end: 20231115
  22. ELELYSO [Suspect]
     Active Substance: TALIGLUCERASE ALFA
     Dosage: 1400 IU, TWICE A MONTH
     Route: 042
  23. ELELYSO [Suspect]
     Active Substance: TALIGLUCERASE ALFA
     Dosage: 1400 IU, TWICE A MONTH
     Route: 042
  24. ELELYSO [Suspect]
     Active Substance: TALIGLUCERASE ALFA
     Dosage: 1400 UNITS TWICE MONTHLY
     Route: 042
     Dates: start: 20240207

REACTIONS (12)
  - Hip arthroplasty [Recovering/Resolving]
  - Tinnitus [Not Recovered/Not Resolved]
  - Malaise [Unknown]
  - Bronchitis [Unknown]
  - Cough [Unknown]
  - Joint swelling [Unknown]
  - Arthralgia [Not Recovered/Not Resolved]
  - Illness [Unknown]
  - Intentional dose omission [Unknown]
  - Inappropriate schedule of product administration [Unknown]
  - Product dose omission issue [Unknown]
  - Product preparation error [Unknown]
